FAERS Safety Report 12996350 (Version 1)
Quarter: 2016Q4

REPORT INFORMATION
  Report Type: Spontaneous
  Country: US (occurrence: US)
  Receive Date: 20161203
  Receipt Date: 20161203
  Transmission Date: 20170207
  Serious: No
  Sender: FDA-Public Use
  Company Number: US-ASTRAZENECA-2016SF21259

PATIENT
  Sex: Male

DRUGS (4)
  1. FAST ACTING INHALER (COMBIVENT) [Concomitant]
  2. SYMBICORT [Suspect]
     Active Substance: BUDESONIDE\FORMOTEROL FUMARATE DIHYDRATE
     Dosage: TWO TIMES A DAY
     Route: 055
  3. OXYGEN. [Concomitant]
     Active Substance: OXYGEN
     Dates: start: 2006
  4. NEBULIZER [Concomitant]
     Active Substance: DEVICE

REACTIONS (1)
  - Dyspnoea [Unknown]
